FAERS Safety Report 24181690 (Version 1)
Quarter: 2024Q3

REPORT INFORMATION
  Report Type: Spontaneous
  Country: CN (occurrence: CN)
  Receive Date: 20240807
  Receipt Date: 20240807
  Transmission Date: 20241016
  Serious: Yes (Other)
  Sender: JOHNSON AND JOHNSON
  Company Number: CN-JNJFOC-20240768194

PATIENT

DRUGS (14)
  1. BEDAQUILINE [Suspect]
     Active Substance: BEDAQUILINE
     Indication: Tuberculosis
     Dosage: 400 MG ONCE DAILY FOR CONSECUTIVE 2 WEEKS
     Route: 048
  2. BEDAQUILINE [Suspect]
     Active Substance: BEDAQUILINE
     Indication: Tuberculosis
     Dosage: 3 TIMES A WEEK
     Route: 048
  3. MOXIFLOXACIN [Concomitant]
     Active Substance: MOXIFLOXACIN
     Route: 050
  4. LEVOFLOXACIN [Concomitant]
     Active Substance: LEVOFLOXACIN
     Route: 050
  5. LINEZOLID [Concomitant]
     Active Substance: LINEZOLID
     Route: 050
  6. CLOFAZIMINE [Concomitant]
     Active Substance: CLOFAZIMINE
     Route: 050
  7. CYCLOSERINE [Concomitant]
     Active Substance: CYCLOSERINE
     Route: 050
  8. ETHAMBUTOL [Concomitant]
     Active Substance: ETHAMBUTOL HYDROCHLORIDE
     Route: 050
  9. PYRAZINAMIDE [Concomitant]
     Active Substance: PYRAZINAMIDE
     Route: 050
  10. PROTIONAMIDE [Concomitant]
     Active Substance: PROTIONAMIDE
     Route: 050
  11. AMIKACIN [Concomitant]
     Active Substance: AMIKACIN
     Route: 050
  12. CAPREOMYCIN [Concomitant]
     Active Substance: CAPREOMYCIN
     Route: 050
  13. AMINOSALICYLATE SODIUM [Concomitant]
     Active Substance: AMINOSALICYLATE SODIUM
  14. PASINIAZID [Concomitant]
     Active Substance: PASINIAZID
     Route: 050

REACTIONS (19)
  - Electrocardiogram QT prolonged [Unknown]
  - Arrhythmia [Unknown]
  - Neuropathy peripheral [Unknown]
  - Epilepsy [Unknown]
  - Nephropathy toxic [Unknown]
  - Hepatotoxicity [Unknown]
  - Psychotic symptom [Unknown]
  - Ototoxicity [Unknown]
  - Optic neuritis [Unknown]
  - Electrocardiogram abnormal [Unknown]
  - Ventricular extrasystoles [Unknown]
  - Treatment failure [Unknown]
  - Rash [Unknown]
  - Gastrointestinal disorder [Unknown]
  - Arthralgia [Unknown]
  - Electrolyte imbalance [Unknown]
  - Haemoptysis [Unknown]
  - Haematotoxicity [Unknown]
  - Vestibular disorder [Unknown]
